FAERS Safety Report 4374535-4 (Version None)
Quarter: 2004Q2

REPORT INFORMATION
  Report Type: 
  Country: None (occurrence: None)
  Receive Date: 20040609
  Receipt Date: 20040428
  Transmission Date: 20050107
  Serious: Yes (Hospitalization)
  Sender: FDA-Public Use
  Company Number: JP-BRISTOL-MYERS SQUIBB COMPANY-12574992

PATIENT
  Age: 30 Year
  Sex: Female

DRUGS (2)
  1. VEPESID [Suspect]
     Indication: ACUTE MYELOID LEUKAEMIA
     Route: 042
     Dates: start: 20030601, end: 20030603
  2. CYTARABINE [Suspect]
     Indication: ACUTE MYELOID LEUKAEMIA
     Dosage: 2 G/M^2
     Route: 042
     Dates: start: 20030530, end: 20030602

REACTIONS (2)
  - SEPSIS [None]
  - WHITE BLOOD CELL COUNT DECREASED [None]
